FAERS Safety Report 10049658 (Version 1)
Quarter: 2014Q2

REPORT INFORMATION
  Report Type: Spontaneous
  Country: CA (occurrence: CA)
  Receive Date: 20140401
  Receipt Date: 20140401
  Transmission Date: 20141212
  Serious: Yes (Other)
  Sender: FDA-Public Use
  Company Number: CA-NAPPMUNDI-CAN-2014-0004777

PATIENT
  Age: 17 Year
  Sex: Male

DRUGS (5)
  1. OXYCONTIN TABLETS [Suspect]
     Indication: PRODUCT USED FOR UNKNOWN INDICATION
     Dosage: UNK
     Route: 065
  2. HEROIN [Suspect]
     Indication: PRODUCT USED FOR UNKNOWN INDICATION
     Dosage: UNK
     Route: 065
  3. COCAINE [Suspect]
     Indication: PRODUCT USED FOR UNKNOWN INDICATION
     Dosage: UNK
     Route: 065
  4. METHAMPHETAMINE [Suspect]
     Indication: PRODUCT USED FOR UNKNOWN INDICATION
     Dosage: UNK
     Route: 065
  5. ANALGESICS [Suspect]
     Indication: PRODUCT USED FOR UNKNOWN INDICATION
     Dosage: UNK
     Route: 065

REACTIONS (11)
  - Overdose [Unknown]
  - Drug dependence [Unknown]
  - Substance abuse [Unknown]
  - Suicide attempt [Unknown]
  - Suicidal ideation [Unknown]
  - Myocardial infarction [Recovered/Resolved]
  - Paranoia [Unknown]
  - Anxiety [Unknown]
  - Thinking abnormal [Unknown]
  - Tremor [Unknown]
  - Drug diversion [Unknown]
